FAERS Safety Report 7919102-8 (Version None)
Quarter: 2011Q4

REPORT INFORMATION
  Report Type: 
  Country: None (occurrence: None)
  Receive Date: 20111116
  Receipt Date: 20091116
  Transmission Date: 20120403
  Serious: Yes (Hospitalization)
  Sender: FDA-Public Use
  Company Number: PHHY2009TW61132

PATIENT

DRUGS (1)
  1. GLEEVEC [Suspect]
     Indication: CHRONIC MYELOID LEUKAEMIA
     Dosage: 4 DF, UNK
     Route: 065

REACTIONS (5)
  - HAEMORRHOIDS [None]
  - DISCOMFORT [None]
  - HAEMATOCHEZIA [None]
  - DRUG INTOLERANCE [None]
  - DEPRESSION [None]
